FAERS Safety Report 18762452 (Version 3)
Quarter: 2022Q2

REPORT INFORMATION
  Report Type: Report from Study
  Country: FR (occurrence: FR)
  Receive Date: 20210120
  Receipt Date: 20220527
  Transmission Date: 20220720
  Serious: Yes (Hospitalization, Other)
  Sender: FDA-Public Use
  Company Number: FR-NOVARTISPH-NVSC2021FR010047

PATIENT
  Age: 54 Year
  Sex: Male
  Weight: 62 kg

DRUGS (20)
  1. NILOTINIB [Suspect]
     Active Substance: NILOTINIB
     Indication: Philadelphia positive acute lymphocytic leukaemia
     Dosage: 800 MG
     Route: 048
     Dates: start: 20201203, end: 20201217
  2. DEXAMETHASONE [Concomitant]
     Active Substance: DEXAMETHASONE
     Indication: Product used for unknown indication
     Dosage: 40 MG
     Route: 042
     Dates: start: 20201203
  3. VINCRISTINE [Concomitant]
     Active Substance: VINCRISTINE
     Indication: Product used for unknown indication
     Dosage: 2 MG
     Route: 042
     Dates: start: 20201203
  4. METHOTREXATE [Concomitant]
     Active Substance: METHOTREXATE
     Indication: Product used for unknown indication
     Dosage: 15  MG
     Route: 037
     Dates: start: 20201204
  5. CYTARABINE [Concomitant]
     Active Substance: CYTARABINE
     Indication: Product used for unknown indication
     Dosage: 40 MG
     Route: 037
     Dates: start: 20201204
  6. PIPERACILLIN SODIUM\TAZOBACTAM SODIUM [Concomitant]
     Active Substance: PIPERACILLIN SODIUM\TAZOBACTAM SODIUM
     Indication: Prophylaxis
     Dosage: 12 G
     Route: 042
     Dates: start: 20201121
  7. CANCIDAS [Concomitant]
     Active Substance: CASPOFUNGIN ACETATE
     Indication: Infection prophylaxis
     Dosage: 50 MG
     Route: 042
     Dates: start: 20201126
  8. NEFOPAM [Concomitant]
     Active Substance: NEFOPAM
     Indication: Pain
     Dosage: 40 MG
     Route: 042
     Dates: start: 20201206
  9. MORPHINE [Concomitant]
     Active Substance: MORPHINE
     Indication: Pain
     Dosage: 1 MG
     Route: 042
     Dates: start: 20201210
  10. PHLOROGLUCINOL [Concomitant]
     Active Substance: PHLOROGLUCINOL
     Indication: Abdominal pain
     Dosage: 40 MG
     Route: 042
     Dates: start: 20201214
  11. ATOVAQUONE [Concomitant]
     Active Substance: ATOVAQUONE
     Indication: Infection prophylaxis
     Dosage: 1500 MG
     Route: 048
     Dates: start: 20201125
  12. VALACYCLOVIR HYDROCHLORIDE [Concomitant]
     Active Substance: VALACYCLOVIR HYDROCHLORIDE
     Indication: Infection prophylaxis
     Dosage: 1 G
     Route: 048
     Dates: start: 20201125
  13. PANTOPRAZOLE [Concomitant]
     Active Substance: PANTOPRAZOLE
     Indication: Prophylaxis against gastrointestinal ulcer
     Dosage: 20 MG
     Route: 048
     Dates: start: 20201211
  14. PANTOPRAZOLE [Concomitant]
     Active Substance: PANTOPRAZOLE
     Dosage: 40 MG
     Route: 065
  15. MOVICOL [Concomitant]
     Active Substance: POLYETHYLENE GLYCOL 3350\POTASSIUM CHLORIDE\SODIUM BICARBONATE\SODIUM CHLORIDE
     Indication: Constipation
     Dosage: 2 UL
     Route: 048
     Dates: start: 20201202
  16. MOVICOL [Concomitant]
     Active Substance: POLYETHYLENE GLYCOL 3350\POTASSIUM CHLORIDE\SODIUM BICARBONATE\SODIUM CHLORIDE
     Dosage: 2 PACKETS
     Route: 065
  17. TENOFOVIR [Concomitant]
     Active Substance: TENOFOVIR
     Indication: Prophylaxis
     Dosage: 245  MG
     Route: 048
     Dates: start: 20201126
  18. POLYETHYLENE GLYCOL 4000\POTASSIUM CHLORIDE\SODIUM BICARBONATE\SODIUM [Concomitant]
     Active Substance: POLYETHYLENE GLYCOL 4000\POTASSIUM CHLORIDE\SODIUM BICARBONATE\SODIUM CHLORIDE\SODIUM SULFATE
     Indication: Constipation
     Dosage: 1 UL
     Route: 048
     Dates: start: 20201215
  19. FENTANYL [Concomitant]
     Active Substance: FENTANYL
     Indication: Product used for unknown indication
     Dosage: 100 UG
     Route: 065
  20. AMOXICILLIN [Concomitant]
     Active Substance: AMOXICILLIN
     Indication: Product used for unknown indication
     Dosage: 1 G,3TIMES A DAY
     Route: 065

REACTIONS (1)
  - Vascular dissection [Not Recovered/Not Resolved]

NARRATIVE: CASE EVENT DATE: 20201215
